FAERS Safety Report 8561540-7 (Version None)
Quarter: 2012Q3

REPORT INFORMATION
  Report Type: 
  Country: None (occurrence: None)
  Receive Date: 20120802
  Receipt Date: 20120726
  Transmission Date: 20120928
  Serious: Yes (Life-Threatening, Hospitalization)
  Sender: FDA-Public Use
  Company Number: JP-CELGENEUS-087-50794-12080109

PATIENT
  Age: 88 Year
  Sex: Female
  Weight: 50 kg

DRUGS (12)
  1. VIDAZA [Suspect]
     Dosage: 75 MILLIGRAM/SQ. METER
     Route: 058
     Dates: start: 20120111, end: 20120117
  2. VIDAZA [Suspect]
     Dosage: 75 MILLIGRAM/SQ. METER
     Route: 058
     Dates: start: 20120306, end: 20120312
  3. RAMELTEON [Concomitant]
     Route: 065
     Dates: start: 20120111, end: 20120117
  4. SULFAMETHOXAZOLE AND TRIMETHOPRIM [Concomitant]
     Route: 065
     Dates: start: 20120111
  5. VIDAZA [Suspect]
     Dosage: 75 MILLIGRAM/SQ. METER
     Route: 058
     Dates: start: 20120208, end: 20120214
  6. MAGLAX [Concomitant]
     Route: 065
  7. RAMELTEON [Concomitant]
     Route: 065
     Dates: start: 20120208, end: 20120214
  8. RAMELTEON [Concomitant]
     Route: 065
     Dates: start: 20120306, end: 20120312
  9. ARMODAFINIL [Concomitant]
     Route: 065
     Dates: start: 20120111
  10. OMEPRAZOLE [Concomitant]
     Route: 065
  11. GASMOTIN [Concomitant]
     Route: 065
  12. SYMMETREL [Concomitant]
     Route: 065

REACTIONS (2)
  - PYELONEPHRITIS [None]
  - HAEMATURIA [None]
